FAERS Safety Report 9099103 (Version 1)
Quarter: 2013Q1

REPORT INFORMATION
  Report Type: Spontaneous
  Country: US (occurrence: US)
  Receive Date: 20130213
  Receipt Date: 20130213
  Transmission Date: 20140127
  Serious: Yes (Other)
  Sender: FDA-Public Use
  Company Number: US-009507513-1302USA004501

PATIENT
  Sex: Male

DRUGS (3)
  1. PEGINTRON [Suspect]
     Indication: HEPATITIS C
     Dosage: UNK
     Dates: start: 20121217
  2. RIBAVIRIN [Suspect]
     Indication: HEPATITIS C
     Dosage: UNK
     Dates: start: 20121217
  3. VICTRELIS [Suspect]
     Indication: HEPATITIS C
     Dosage: UNK
     Dates: start: 20130114

REACTIONS (7)
  - Loss of consciousness [Unknown]
  - Asthenia [Unknown]
  - Dizziness [Unknown]
  - Hyperventilation [Unknown]
  - Dyspnoea [Unknown]
  - Photopsia [Unknown]
  - Red blood cell count decreased [Unknown]
